FAERS Safety Report 5961133-1 (Version None)
Quarter: 2008Q4

REPORT INFORMATION
  Report Type: 
  Country: None (occurrence: None)
  Receive Date: 20081119
  Receipt Date: 20081105
  Transmission Date: 20090506
  Serious: Yes (Hospitalization)
  Sender: FDA-Public Use
  Company Number: 16769

PATIENT
  Age: 63 Year
  Sex: Female

DRUGS (5)
  1. MORPHINE SULFATE [Suspect]
     Indication: PAIN
     Dosage: 30MG BID ORAL
     Route: 048
     Dates: start: 20080701
  2. MORPHINE SULFATE [Suspect]
     Indication: PAIN
     Dosage: 60MG TID ORAL
     Route: 048
     Dates: end: 20081023
  3. HYDROCODONE BITARTRATE [Concomitant]
  4. ATENOLOL [Concomitant]
  5. LISINOPRIL [Concomitant]

REACTIONS (5)
  - DIZZINESS [None]
  - DRUG WITHDRAWAL SYNDROME [None]
  - HYPERHIDROSIS [None]
  - MALAISE [None]
  - MUSCLE SPASMS [None]
